FAERS Safety Report 11752163 (Version 1)
Quarter: 2015Q4

REPORT INFORMATION
  Report Type: Spontaneous
  Country: US (occurrence: US)
  Receive Date: 20151118
  Receipt Date: 20151118
  Transmission Date: 20160304
  Serious: No
  Sender: FDA-Public Use
  Company Number: US-AKORN, INC.-1044399

PATIENT
  Age: 65 Year
  Sex: Female

DRUGS (1)
  1. TROPICAMIDE. [Suspect]
     Active Substance: TROPICAMIDE
     Route: 047

REACTIONS (3)
  - Vision blurred [Recovered/Resolved]
  - Photophobia [Not Recovered/Not Resolved]
  - Dysgeusia [Recovered/Resolved]
